FAERS Safety Report 8618699-2 (Version None)
Quarter: 2012Q3

REPORT INFORMATION
  Report Type: 
  Country: None (occurrence: None)
  Receive Date: 20120815
  Receipt Date: 20120815
  Transmission Date: 20120928
  Serious: Yes (Other)
  Sender: FDA-Public Use
  Company Number: None

PATIENT
  Sex: Male

DRUGS (2)
  1. PEGASYS [Suspect]
     Indication: HEPATITIS C
     Dosage: PEGASYS 180MCG QW SQ
     Dates: start: 20120217
  2. RIBAVIRIN [Suspect]
     Indication: HEPATITIS C
     Dosage: RIBAVIRIN 600MG BID PO
     Route: 048
     Dates: start: 20120217

REACTIONS (7)
  - INFLUENZA LIKE ILLNESS [None]
  - CHILLS [None]
  - DIZZINESS [None]
  - WEIGHT DECREASED [None]
  - ASTHENIA [None]
  - SKIN EXFOLIATION [None]
  - PHOTOPHOBIA [None]
